FAERS Safety Report 5779829-3 (Version None)
Quarter: 2008Q2

REPORT INFORMATION
  Report Type: 
  Country: None (occurrence: None)
  Receive Date: 20080620
  Receipt Date: 20080605
  Transmission Date: 20081010
  Serious: Yes (Other)
  Sender: FDA-Public Use
  Company Number: PHHY2008IE09933

PATIENT
  Age: 45 Year
  Sex: Female

DRUGS (1)
  1. ZOMETA [Suspect]
     Dosage: 6-8 DOSES IN ONE MONTH

REACTIONS (3)
  - BLOOD CALCIUM DECREASED [None]
  - DRUG ADMINISTRATION ERROR [None]
  - LIVER FUNCTION TEST ABNORMAL [None]
